FAERS Safety Report 7082531-1 (Version None)
Quarter: 2010Q4

REPORT INFORMATION
  Report Type: 
  Country: None (occurrence: None)
  Receive Date: 20101104
  Receipt Date: 20101025
  Transmission Date: 20110411
  Serious: Yes (Other)
  Sender: FDA-Public Use
  Company Number: US-BAYER-200911243NA

PATIENT
  Sex: Male

DRUGS (6)
  1. MAGNEVIST [Suspect]
     Indication: NUCLEAR MAGNETIC RESONANCE IMAGING
  2. OMNISCAN [Suspect]
     Indication: NUCLEAR MAGNETIC RESONANCE IMAGING
     Dates: start: 20020116, end: 20020116
  3. OMNISCAN [Suspect]
     Dates: start: 20030117, end: 20030117
  4. OMNISCAN [Suspect]
     Dates: start: 20030728, end: 20030728
  5. OMNISCAN [Suspect]
     Dates: start: 20050803, end: 20050803
  6. OMNISCAN [Suspect]
     Dates: start: 20060411, end: 20060411

REACTIONS (7)
  - ANHEDONIA [None]
  - EMOTIONAL DISTRESS [None]
  - FIBROSIS [None]
  - GENERAL PHYSICAL HEALTH DETERIORATION [None]
  - MENTAL DISORDER [None]
  - NEPHROGENIC SYSTEMIC FIBROSIS [None]
  - PAIN [None]
